FAERS Safety Report 14476041 (Version 3)
Quarter: 2020Q2

REPORT INFORMATION
  Report Type: Spontaneous
  Country: FR (occurrence: FR)
  Receive Date: 20180201
  Receipt Date: 20200601
  Transmission Date: 20200713
  Serious: Yes (Hospitalization, Other)
  Sender: FDA-Public Use
  Company Number: FR-BRISTOL-MYERS SQUIBB COMPANY-BMS-2018-007108

PATIENT
  Age: 31 Year
  Sex: Female

DRUGS (2)
  1. YERVOY [Suspect]
     Active Substance: IPILIMUMAB
     Indication: MALIGNANT MELANOMA
     Dosage: 190 MILLIGRAM, QCYCLE
     Route: 041
     Dates: start: 20170414, end: 20170621
  2. OPDIVO [Suspect]
     Active Substance: NIVOLUMAB
     Indication: MALIGNANT MELANOMA
     Dosage: 60 MILLIGRAM, QCYCLE
     Route: 041
     Dates: start: 20170414

REACTIONS (3)
  - Hypophysitis [Not Recovered/Not Resolved]
  - Hypothyroidism [Recovered/Resolved with Sequelae]
  - Gastritis [Recovered/Resolved]

NARRATIVE: CASE EVENT DATE: 20170726
